FAERS Safety Report 19589136 (Version 17)
Quarter: 2023Q4

REPORT INFORMATION
  Report Type: Spontaneous
  Country: CA (occurrence: CA)
  Receive Date: 20210721
  Receipt Date: 20231109
  Transmission Date: 20240110
  Serious: Yes (Other)
  Sender: FDA-Public Use
  Company Number: CA-PFIZER INC-2021619305

PATIENT
  Age: 42 Year
  Sex: Female
  Weight: 86.1 kg

DRUGS (5)
  1. XELJANZ [Suspect]
     Active Substance: TOFACITINIB CITRATE
     Indication: Colitis ulcerative
     Dosage: 10 MG, 2X/DAY (INDUCTION PERIOD - FOR A DURATION OF 8 WEEKS)
     Route: 048
     Dates: start: 20210514, end: 2021
  2. XELJANZ [Suspect]
     Active Substance: TOFACITINIB CITRATE
     Dosage: 5 MG, 2X/DAY (MAINTENANCE DOSE)
     Route: 048
     Dates: start: 2021, end: 2022
  3. XELJANZ [Suspect]
     Active Substance: TOFACITINIB CITRATE
     Dosage: 10 MG, 2X/DAY, EVERY 4 WEEK (10MG BID REINDUCTION FOR 4 WEEKS, THEN 5 MG BID)
     Route: 048
     Dates: start: 2022
  4. ESOMEPRAZOLE [Concomitant]
     Active Substance: ESOMEPRAZOLE
     Dosage: UNK
  5. METFORMIN [Concomitant]
     Active Substance: METFORMIN HYDROCHLORIDE
     Dosage: UNK

REACTIONS (17)
  - Haematochezia [Unknown]
  - Type 2 diabetes mellitus [Not Recovered/Not Resolved]
  - Hysterectomy [Unknown]
  - Drug ineffective [Unknown]
  - Headache [Recovered/Resolved]
  - Nausea [Unknown]
  - Oral candidiasis [Unknown]
  - Abdominal discomfort [Unknown]
  - Diarrhoea [Unknown]
  - Road traffic accident [Unknown]
  - Musculoskeletal injury [Unknown]
  - Joint injury [Unknown]
  - Condition aggravated [Not Recovered/Not Resolved]
  - Urinary tract infection [Unknown]
  - Loss of personal independence in daily activities [Unknown]
  - Sinusitis [Recovering/Resolving]
  - Pyrexia [Unknown]

NARRATIVE: CASE EVENT DATE: 20210101
